FAERS Safety Report 13756299 (Version 1)
Quarter: 2017Q3

REPORT INFORMATION
  Report Type: Report from Study
  Country: CA (occurrence: CA)
  Receive Date: 20170714
  Receipt Date: 20170714
  Transmission Date: 20171127
  Serious: Yes (Other)
  Sender: FDA-Public Use
  Company Number: CA-JNJFOC-20170621500

PATIENT
  Age: 59 Year
  Sex: Female
  Weight: 77.1 kg

DRUGS (3)
  1. REMICADE [Suspect]
     Active Substance: INFLIXIMAB
     Indication: CROHN^S DISEASE
     Route: 042
     Dates: start: 20150602
  2. REMICADE [Suspect]
     Active Substance: INFLIXIMAB
     Indication: CROHN^S DISEASE
     Route: 042
     Dates: start: 20170620
  3. REMICADE [Suspect]
     Active Substance: INFLIXIMAB
     Indication: CROHN^S DISEASE
     Route: 042
     Dates: end: 20170706

REACTIONS (6)
  - Infusion related reaction [Not Recovered/Not Resolved]
  - Cough [Recovered/Resolved]
  - Lupus-like syndrome [Unknown]
  - Pain [Unknown]
  - Respiratory tract congestion [Unknown]
  - Malaise [Unknown]

NARRATIVE: CASE EVENT DATE: 20170620
